FAERS Safety Report 6838722-5 (Version None)
Quarter: 2010Q3

REPORT INFORMATION
  Report Type: 
  Country: None (occurrence: None)
  Receive Date: 20100713
  Receipt Date: 20070611
  Transmission Date: 20110219
  Serious: No
  Sender: FDA-Public Use
  Company Number: US-PFIZER INC-2007046032

PATIENT
  Sex: Female
  Weight: 79.4 kg

DRUGS (2)
  1. CHANTIX [Suspect]
     Indication: SMOKING CESSATION THERAPY
     Dates: start: 20070518
  2. LISINOPRIL [Concomitant]
     Indication: HYPERTENSION

REACTIONS (9)
  - ANXIETY [None]
  - DECREASED APPETITE [None]
  - DISTURBANCE IN ATTENTION [None]
  - FATIGUE [None]
  - FEELING ABNORMAL [None]
  - NAUSEA [None]
  - RESTLESS LEGS SYNDROME [None]
  - RESTLESSNESS [None]
  - SLEEP DISORDER [None]
